FAERS Safety Report 4662047-X (Version None)
Quarter: 2005Q2

REPORT INFORMATION
  Report Type: 
  Country: None (occurrence: None)
  Receive Date: 20050512
  Receipt Date: 20050512
  Transmission Date: 20051028
  Serious: Yes (Death, Hospitalization, Disabling, Other)
  Sender: FDA-Public Use
  Company Number: None

PATIENT

DRUGS (3)
  1. TAXOL [Suspect]
     Indication: OVARIAN CANCER
     Dosage: DEC 98, 11 TIMES  ONCE A MONTH VIA GROSHING TO VENA CAVA
     Dates: start: 19981201
  2. CARBOPLATIN W/TAXOL [Concomitant]
  3. PARAPLATIN [Suspect]
     Indication: OVARIAN CANCER
     Dosage: DEC 98, 11 TIMES  ONCE A MONTH VIA GROSHING TO VENA CAVA
     Dates: start: 19981201

REACTIONS (11)
  - ANASTOMOTIC COMPLICATION [None]
  - COLOSTOMY [None]
  - DEHYDRATION [None]
  - DRUG RESISTANCE [None]
  - GASTROINTESTINAL DISORDER [None]
  - HERNIA [None]
  - INCORRECT DOSE ADMINISTERED [None]
  - INFECTION [None]
  - NEOPLASM MALIGNANT [None]
  - STARVATION [None]
  - WEIGHT DECREASED [None]
